FAERS Safety Report 10331182 (Version 4)
Quarter: 2015Q1

REPORT INFORMATION
  Report Type: Spontaneous
  Country: US (occurrence: None)
  Receive Date: 20140718
  Receipt Date: 20150107
  Transmission Date: 20150720
  Serious: Yes (Other)
  Sender: FDA-Public Use
  Company Number: ADR-2014-01240

PATIENT
  Age: 56 Year
  Sex: Female

DRUGS (3)
  1. BACLOFEN. [Suspect]
     Active Substance: BACLOFEN
     Indication: PAIN
     Dosage: 80MCG/DAY
  2. MORPHINE [Suspect]
     Active Substance: MORPHINE
     Indication: PAIN
  3. CLONIDINE. [Suspect]
     Active Substance: CLONIDINE
     Route: 037

REACTIONS (14)
  - Musculoskeletal stiffness [None]
  - Feeling abnormal [None]
  - Drug withdrawal syndrome [None]
  - Palpitations [None]
  - Hyperhidrosis [None]
  - Dysstasia [None]
  - Headache [None]
  - Restlessness [None]
  - Ill-defined disorder [None]
  - Pharyngeal disorder [None]
  - Pain [None]
  - Influenza like illness [None]
  - Underdose [None]
  - Nausea [None]

NARRATIVE: CASE EVENT DATE: 20140707
